FAERS Safety Report 21815117 (Version 1)
Quarter: 2023Q1

REPORT INFORMATION
  Report Type: Spontaneous
  Country: US (occurrence: US)
  Receive Date: 20230104
  Receipt Date: 20230104
  Transmission Date: 20230417
  Serious: No
  Sender: FDA-Public Use
  Company Number: US-CSLP-61510281594-V11323544-8

PATIENT
  Age: 36 Year
  Sex: Female

DRUGS (7)
  1. ANTICOAGULANT SODIUM CITRATE [Suspect]
     Active Substance: SODIUM CITRATE
     Indication: Anticoagulant therapy
     Route: 050
     Dates: start: 20221219, end: 20221219
  2. TYLENOL [Concomitant]
     Active Substance: ACETAMINOPHEN
     Indication: Pain
  3. LEVOMEFOLIC ACID [Concomitant]
     Active Substance: LEVOMEFOLIC ACID
     Indication: Prophylaxis
  4. IBUPROFEN [Concomitant]
     Active Substance: IBUPROFEN
     Indication: Pain
  5. HYDROCHLOROTHIAZIDE [Concomitant]
     Active Substance: HYDROCHLOROTHIAZIDE
     Indication: Blood pressure measurement
  6. LISINOPRIL [Concomitant]
     Active Substance: LISINOPRIL
     Indication: Blood pressure measurement
  7. TOPIRAMATE [Concomitant]
     Active Substance: TOPIRAMATE
     Indication: Migraine

REACTIONS (12)
  - Dizziness [Recovered/Resolved]
  - Feeling hot [Recovered/Resolved]
  - Chills [Recovered/Resolved]
  - Nausea [Recovered/Resolved]
  - Pain [Recovered/Resolved]
  - Tetany [Recovered/Resolved]
  - Visual impairment [Recovered/Resolved]
  - Muscle spasms [Recovered/Resolved]
  - Tachycardia [Recovered/Resolved]
  - Hypotension [Recovered/Resolved]
  - Vessel puncture site pain [Recovered/Resolved]
  - Vessel puncture site haemorrhage [Recovered/Resolved]

NARRATIVE: CASE EVENT DATE: 20221219
